FAERS Safety Report 7263925-8 (Version None)
Quarter: 2011Q1

REPORT INFORMATION
  Report Type: 
  Country: None (occurrence: None)
  Receive Date: 20110130
  Receipt Date: 20101108
  Transmission Date: 20110831
  Serious: No
  Sender: FDA-Public Use
  Company Number: US-ABBOTT-10P-163-0684424-00

PATIENT
  Age: 31 Year
  Sex: Female

DRUGS (5)
  1. HYDROCODONE [Concomitant]
     Indication: PAIN
  2. PREDNISONE [Concomitant]
     Indication: CROHN'S DISEASE
  3. ASACOL [Concomitant]
     Indication: CROHN'S DISEASE
  4. VASALAMINE ENEMAS [Concomitant]
     Indication: CROHN'S DISEASE
  5. HUMIRA [Suspect]
     Indication: CROHN'S DISEASE
     Dates: start: 20100701

REACTIONS (3)
  - DIARRHOEA [None]
  - ABDOMINAL PAIN [None]
  - PROCTALGIA [None]
